FAERS Safety Report 7309948-1 (Version None)
Quarter: 2011Q1

REPORT INFORMATION
  Report Type: 
  Country: None (occurrence: None)
  Receive Date: 20110224
  Receipt Date: 20110211
  Transmission Date: 20110831
  Serious: Yes (Other)
  Sender: FDA-Public Use
  Company Number: US-CELGENEUS-163-21880-10092121

PATIENT
  Sex: Female

DRUGS (12)
  1. REVLIMID [Suspect]
     Route: 048
     Dates: start: 20100311
  2. ASA [Concomitant]
     Route: 065
  3. DEXAMETHASONE [Concomitant]
     Route: 065
  4. INDAPAMIDE [Concomitant]
     Route: 065
  5. AVAPRO [Concomitant]
     Route: 065
  6. NEXIUM [Concomitant]
     Route: 065
  7. BIOTIN [Concomitant]
     Route: 065
  8. CENTRUM [Concomitant]
     Route: 065
  9. REVLIMID [Suspect]
     Indication: MULTIPLE MYELOMA
     Route: 048
     Dates: start: 20080425
  10. SYNTHROID [Concomitant]
     Route: 065
  11. VITAMIN D [Concomitant]
     Route: 065
  12. ESTROVEN [Concomitant]
     Route: 065

REACTIONS (5)
  - ABASIA [None]
  - MUSCULOSKELETAL STIFFNESS [None]
  - JOINT SWELLING [None]
  - OEDEMA PERIPHERAL [None]
  - BACK PAIN [None]
